FAERS Safety Report 7363883-1 (Version None)
Quarter: 2011Q1

REPORT INFORMATION
  Report Type: 
  Country: None (occurrence: None)
  Receive Date: 20110321
  Receipt Date: 20110316
  Transmission Date: 20110831
  Serious: Yes (Hospitalization)
  Sender: FDA-Public Use
  Company Number: FR-ROCHE-763249

PATIENT
  Sex: Male

DRUGS (11)
  1. FLUOROURACIL [Suspect]
     Dosage: 800 MG BOLUS FOLLOWED BY 4,800 MG CONTINUOUS.
     Route: 042
     Dates: start: 20100518, end: 20101230
  2. OXALIPLATIN [Suspect]
     Dosage: LAST DOSE PRIOR TO SAE ON 01 FEB 2011, FORM VIALS
     Route: 042
     Dates: start: 20110107, end: 20110216
  3. FLUOROURACIL [Suspect]
     Dosage: 600 MG BOLUS FOLLOWED BY 3,600 MG CONTINUOUS.
     Route: 042
     Dates: start: 20110107, end: 20110216
  4. METHYLPREDNISOLONE [Suspect]
     Dosage: DRUG NAME REPORTED AS SOLUMEDROL
     Route: 065
  5. KYTRIL [Suspect]
     Route: 065
  6. OXALIPLATIN [Suspect]
     Dosage: LAST DOSE ON 16 DEC 2010, FORM VIALS, TEMPORARILY INTERRUPTED.
     Route: 042
     Dates: start: 20100518, end: 20101230
  7. SIMVASTATIN [Concomitant]
  8. CHLORHEXIDINE GLUCONATE [Concomitant]
     Dosage: CHLORHEXIDINE, CHLOROBUTANOL.
     Dates: start: 20110110, end: 20110117
  9. NAFTIDROFURYL [Concomitant]
  10. LOSARTAN POTASSIUM [Concomitant]
     Dates: start: 20101231, end: 20110104
  11. INSULINE [Concomitant]
     Dosage: TTD: 26 UL, DRUG: INSULINE GLARGINE (LANTUS)

REACTIONS (1)
  - INFECTION [None]
